FAERS Safety Report 20958144 (Version 1)
Quarter: 2022Q2

REPORT INFORMATION
  Report Type: Spontaneous
  Country: US (occurrence: US)
  Receive Date: 20220614
  Receipt Date: 20220614
  Transmission Date: 20220721
  Serious: No
  Sender: FDA-Public Use
  Company Number: US-PFIZER INC-202200828076

PATIENT

DRUGS (2)
  1. PAXLOVID [Suspect]
     Active Substance: NIRMATRELVIR\RITONAVIR
     Indication: COVID-19 treatment
     Dosage: 6 DF, (I TOOK SIX PILLS)
  2. PAXLOVID [Suspect]
     Active Substance: NIRMATRELVIR\RITONAVIR
     Dosage: 6 DF, (THIS MORNING I GOT UP AND I TOOK SIX MORE)
     Dates: start: 20220609

REACTIONS (2)
  - Incorrect dose administered [Unknown]
  - Accidental overdose [Unknown]
